FAERS Safety Report 11467115 (Version 2)
Quarter: 2016Q1

REPORT INFORMATION
  Report Type: Report from Study
  Country: US (occurrence: US)
  Receive Date: 20150908
  Receipt Date: 20160229
  Transmission Date: 20160525
  Serious: Yes (Other)
  Sender: FDA-Public Use
  Company Number: US-UCBSA-2015028143

PATIENT
  Age: 62 Year
  Sex: Female

DRUGS (3)
  1. LACOSAMIDE [Suspect]
     Active Substance: LACOSAMIDE
     Indication: SEIZURE
     Dosage: 200 MG, EV 2 WEEKS(QOW) (EXPIRATION DATE:31-DEC-2019)
  2. KEPPRA [Suspect]
     Active Substance: LEVETIRACETAM
     Indication: SEIZURE
     Dosage: UNK
  3. TRIAMTERENE. [Concomitant]
     Active Substance: TRIAMTERENE
     Indication: PRODUCT USED FOR UNKNOWN INDICATION
     Dosage: UNK

REACTIONS (7)
  - Dizziness [Unknown]
  - Cerebrovascular accident [Unknown]
  - Seizure [Unknown]
  - Cerebral haemorrhage [Unknown]
  - Unevaluable event [Unknown]
  - Speech disorder [Unknown]
  - Meningioma [Unknown]

NARRATIVE: CASE EVENT DATE: 201401
